FAERS Safety Report 13117425 (Version 6)
Quarter: 2020Q1

REPORT INFORMATION
  Report Type: Spontaneous
  Country: JP (occurrence: JP)
  Receive Date: 20170116
  Receipt Date: 20200101
  Transmission Date: 20200409
  Serious: Yes (Death, Other)
  Sender: FDA-Public Use
  Company Number: JP-ASTRAZENECA-2016SF34794

PATIENT
  Age: 26257 Day
  Sex: Female
  Weight: 34 kg

DRUGS (96)
  1. SEROQUEL [Suspect]
     Active Substance: QUETIAPINE FUMARATE
     Indication: NAUSEA
     Route: 048
     Dates: start: 20160912, end: 20160923
  2. METHAPAIN [Interacting]
     Active Substance: METHADONE HYDROCHLORIDE
     Indication: PANCREATIC CARCINOMA
     Route: 048
  3. METHAPAIN [Interacting]
     Active Substance: METHADONE HYDROCHLORIDE
     Indication: PANCREATIC CARCINOMA
     Route: 048
     Dates: start: 20160924, end: 20161101
  4. METHAPAIN [Interacting]
     Active Substance: METHADONE HYDROCHLORIDE
     Indication: PANCREATIC CARCINOMA
     Route: 048
     Dates: start: 20160912, end: 20160923
  5. METHAPAIN [Interacting]
     Active Substance: METHADONE HYDROCHLORIDE
     Indication: PANCREATIC CARCINOMA
     Route: 048
     Dates: start: 20160927, end: 20160927
  6. METHAPAIN [Interacting]
     Active Substance: METHADONE HYDROCHLORIDE
     Indication: PANCREATIC CARCINOMA
     Route: 048
     Dates: start: 20160928, end: 20161006
  7. CELECOX [Suspect]
     Active Substance: CELECOXIB
     Indication: PANCREATIC CARCINOMA
     Route: 048
     Dates: end: 20161012
  8. CELECOX [Suspect]
     Active Substance: CELECOXIB
     Indication: OSTEOMA
     Route: 048
     Dates: end: 20161012
  9. OXINORM [OXYCODONE HYDROCHLORIDE] [Suspect]
     Active Substance: OXYCODONE HYDROCHLORIDE
     Indication: PANCREATIC CARCINOMA
     Route: 048
     Dates: start: 20161009, end: 20161009
  10. OXINORM [OXYCODONE HYDROCHLORIDE] [Suspect]
     Active Substance: OXYCODONE HYDROCHLORIDE
     Indication: BENIGN BONE NEOPLASM
     Route: 048
     Dates: start: 20161010, end: 20161011
  11. POLARAMINE [Concomitant]
     Active Substance: DEXCHLORPHENIRAMINE MALEATE
     Dosage: 2.0MG UNKNOWN
     Route: 048
     Dates: start: 20160923, end: 20161012
  12. PLAS AMINO [Concomitant]
     Dates: start: 20161012
  13. VITAMEDIN [Concomitant]
     Active Substance: CYANOCOBALAMIN\PYRIDOXINE HYDROCHLORIDE\THIAMINE
     Dates: start: 20161011, end: 20161012
  14. SEROQUEL [Interacting]
     Active Substance: QUETIAPINE FUMARATE
     Indication: PANCREATIC CARCINOMA
     Route: 048
     Dates: start: 20160921, end: 20161011
  15. METHAPAIN [Interacting]
     Active Substance: METHADONE HYDROCHLORIDE
     Indication: BENIGN BONE NEOPLASM
     Route: 048
  16. METHAPAIN [Interacting]
     Active Substance: METHADONE HYDROCHLORIDE
     Indication: BENIGN BONE NEOPLASM
     Route: 048
     Dates: start: 20160924, end: 20161101
  17. METHAPAIN [Interacting]
     Active Substance: METHADONE HYDROCHLORIDE
     Indication: PAIN
     Route: 048
     Dates: start: 20160926, end: 20160926
  18. METHAPAIN [Interacting]
     Active Substance: METHADONE HYDROCHLORIDE
     Indication: BENIGN BONE NEOPLASM
     Route: 048
     Dates: start: 20161011, end: 20161011
  19. OXINORM [OXYCODONE HYDROCHLORIDE] [Suspect]
     Active Substance: OXYCODONE HYDROCHLORIDE
     Indication: BENIGN BONE NEOPLASM
     Route: 048
     Dates: start: 20160927, end: 20161007
  20. OXINORM [OXYCODONE HYDROCHLORIDE] [Suspect]
     Active Substance: OXYCODONE HYDROCHLORIDE
     Indication: PANCREATIC CARCINOMA
     Route: 048
     Dates: start: 20161008, end: 20161008
  21. OXINORM [OXYCODONE HYDROCHLORIDE] [Suspect]
     Active Substance: OXYCODONE HYDROCHLORIDE
     Indication: BENIGN BONE NEOPLASM
     Route: 048
     Dates: start: 20161009, end: 20161009
  22. SOLITA-T3 [Concomitant]
     Active Substance: POTASSIUM CHLORIDE\SODIUM CHLORIDE\SODIUM LACTATE
  23. METHAPAIN [Interacting]
     Active Substance: METHADONE HYDROCHLORIDE
     Indication: PANCREATIC CARCINOMA
     Route: 048
  24. METHAPAIN [Interacting]
     Active Substance: METHADONE HYDROCHLORIDE
     Indication: PAIN
     Route: 048
     Dates: start: 20160912, end: 20161011
  25. METHAPAIN [Interacting]
     Active Substance: METHADONE HYDROCHLORIDE
     Indication: PANCREATIC CARCINOMA
     Route: 048
     Dates: start: 20161008, end: 20161008
  26. METHAPAIN [Interacting]
     Active Substance: METHADONE HYDROCHLORIDE
     Indication: BENIGN BONE NEOPLASM
     Route: 048
     Dates: start: 20161009, end: 20161009
  27. METHAPAIN [Interacting]
     Active Substance: METHADONE HYDROCHLORIDE
     Indication: PAIN
     Route: 048
     Dates: start: 20161012, end: 20161012
  28. METOCLOPRAMIDE. [Suspect]
     Active Substance: METOCLOPRAMIDE
     Indication: PRODUCT USED FOR UNKNOWN INDICATION
     Route: 065
  29. OXINORM [OXYCODONE HYDROCHLORIDE] [Suspect]
     Active Substance: OXYCODONE HYDROCHLORIDE
     Indication: BENIGN BONE NEOPLASM
     Route: 048
     Dates: end: 20160923
  30. OXINORM [OXYCODONE HYDROCHLORIDE] [Suspect]
     Active Substance: OXYCODONE HYDROCHLORIDE
     Indication: PANCREATIC CARCINOMA
     Route: 048
     Dates: start: 20160926, end: 20160926
  31. OXINORM [OXYCODONE HYDROCHLORIDE] [Suspect]
     Active Substance: OXYCODONE HYDROCHLORIDE
     Indication: BENIGN BONE NEOPLASM
     Route: 048
     Dates: start: 20161013
  32. SEROQUEL [Interacting]
     Active Substance: QUETIAPINE FUMARATE
     Indication: PANCREATIC CARCINOMA
     Route: 048
     Dates: start: 20160912, end: 20160923
  33. METHAPAIN [Interacting]
     Active Substance: METHADONE HYDROCHLORIDE
     Indication: PANCREATIC CARCINOMA
     Route: 048
     Dates: start: 20161009, end: 20161013
  34. METHAPAIN [Interacting]
     Active Substance: METHADONE HYDROCHLORIDE
     Indication: BENIGN BONE NEOPLASM
     Route: 048
     Dates: start: 20161009, end: 20161013
  35. METHAPAIN [Interacting]
     Active Substance: METHADONE HYDROCHLORIDE
     Indication: PANCREATIC CARCINOMA
     Route: 048
  36. METHAPAIN [Interacting]
     Active Substance: METHADONE HYDROCHLORIDE
     Indication: PANCREATIC CARCINOMA
     Route: 048
     Dates: start: 20160924, end: 20160925
  37. METHAPAIN [Interacting]
     Active Substance: METHADONE HYDROCHLORIDE
     Indication: PAIN
     Route: 048
     Dates: start: 20160928, end: 20161006
  38. METHAPAIN [Interacting]
     Active Substance: METHADONE HYDROCHLORIDE
     Indication: BENIGN BONE NEOPLASM
     Route: 048
     Dates: start: 20161007, end: 20161007
  39. METHAPAIN [Interacting]
     Active Substance: METHADONE HYDROCHLORIDE
     Indication: PAIN
     Route: 048
     Dates: start: 20161009, end: 20161009
  40. METHAPAIN [Interacting]
     Active Substance: METHADONE HYDROCHLORIDE
     Indication: PANCREATIC CARCINOMA
     Route: 048
     Dates: start: 20161012, end: 20161012
  41. METHAPAIN [Interacting]
     Active Substance: METHADONE HYDROCHLORIDE
     Indication: PANCREATIC CARCINOMA
     Route: 048
     Dates: start: 20161013, end: 20161013
  42. OXINORM [OXYCODONE HYDROCHLORIDE] [Suspect]
     Active Substance: OXYCODONE HYDROCHLORIDE
     Indication: PANCREATIC CARCINOMA
     Dosage: 20-60 MG/DAY
     Route: 048
  43. OXINORM [OXYCODONE HYDROCHLORIDE] [Suspect]
     Active Substance: OXYCODONE HYDROCHLORIDE
     Indication: PANCREATIC CARCINOMA
     Route: 048
     Dates: start: 20161010, end: 20161011
  44. ZYPREXA [Concomitant]
     Active Substance: OLANZAPINE
     Dosage: ORODISPERSIBLE TABLET
  45. SOLITA-T1 [Concomitant]
  46. PHYSIO 35 [Concomitant]
     Active Substance: ELECTROLYTES NOS
     Dates: start: 20161012, end: 20161012
  47. METHAPAIN [Interacting]
     Active Substance: METHADONE HYDROCHLORIDE
     Indication: PAIN
     Route: 048
  48. METHAPAIN [Interacting]
     Active Substance: METHADONE HYDROCHLORIDE
     Indication: PAIN
     Route: 048
     Dates: start: 20160924, end: 20161101
  49. METHAPAIN [Interacting]
     Active Substance: METHADONE HYDROCHLORIDE
     Indication: PAIN
     Route: 048
     Dates: start: 20160924, end: 20160925
  50. METHAPAIN [Interacting]
     Active Substance: METHADONE HYDROCHLORIDE
     Indication: BENIGN BONE NEOPLASM
     Route: 048
     Dates: start: 20160924, end: 20160925
  51. METHAPAIN [Interacting]
     Active Substance: METHADONE HYDROCHLORIDE
     Indication: PAIN
     Route: 048
     Dates: start: 20161007, end: 20161007
  52. METHAPAIN [Interacting]
     Active Substance: METHADONE HYDROCHLORIDE
     Indication: PAIN
     Route: 048
     Dates: start: 20161101
  53. OXINORM (OXYCODONE HYDROCHLORIDE) [Suspect]
     Active Substance: OXYCODONE HYDROCHLORIDE
     Indication: BENIGN BONE NEOPLASM
     Route: 048
     Dates: start: 20160926, end: 20160926
  54. OXINORM [OXYCODONE HYDROCHLORIDE] [Suspect]
     Active Substance: OXYCODONE HYDROCHLORIDE
     Indication: PANCREATIC CARCINOMA
     Route: 048
     Dates: start: 20161013
  55. CLONAZEPAM. [Concomitant]
     Active Substance: CLONAZEPAM
     Dosage: 0.5MG UNKNOWN
  56. GLUCOSE [Concomitant]
     Active Substance: DEXTROSE
     Dates: start: 20161011, end: 20161012
  57. SEROQUEL [Interacting]
     Active Substance: QUETIAPINE FUMARATE
     Indication: NAUSEA
     Route: 048
     Dates: start: 20160921, end: 20161011
  58. METHAPAIN [Interacting]
     Active Substance: METHADONE HYDROCHLORIDE
     Indication: PAIN
     Route: 048
  59. METHAPAIN [Interacting]
     Active Substance: METHADONE HYDROCHLORIDE
     Indication: PAIN
     Route: 048
     Dates: start: 20160912, end: 20160923
  60. METHAPAIN [Interacting]
     Active Substance: METHADONE HYDROCHLORIDE
     Indication: BENIGN BONE NEOPLASM
     Route: 048
  61. METHAPAIN [Interacting]
     Active Substance: METHADONE HYDROCHLORIDE
     Indication: PAIN
     Route: 048
     Dates: start: 20161101
  62. METHAPAIN [Interacting]
     Active Substance: METHADONE HYDROCHLORIDE
     Indication: BENIGN BONE NEOPLASM
     Route: 048
     Dates: start: 20160926, end: 20160926
  63. METHAPAIN [Interacting]
     Active Substance: METHADONE HYDROCHLORIDE
     Indication: BENIGN BONE NEOPLASM
     Route: 048
     Dates: start: 20160927, end: 20160927
  64. METHAPAIN [Interacting]
     Active Substance: METHADONE HYDROCHLORIDE
     Indication: BENIGN BONE NEOPLASM
     Route: 048
     Dates: start: 20160928, end: 20161006
  65. METHAPAIN [Interacting]
     Active Substance: METHADONE HYDROCHLORIDE
     Indication: PANCREATIC CARCINOMA
     Route: 048
     Dates: start: 20161010, end: 20161010
  66. METHAPAIN [Interacting]
     Active Substance: METHADONE HYDROCHLORIDE
     Indication: PAIN
     Route: 048
     Dates: start: 20161011, end: 20161011
  67. METHAPAIN [Interacting]
     Active Substance: METHADONE HYDROCHLORIDE
     Indication: BENIGN BONE NEOPLASM
     Route: 048
     Dates: start: 20161012, end: 20161012
  68. METHAPAIN [Interacting]
     Active Substance: METHADONE HYDROCHLORIDE
     Indication: PAIN
     Route: 048
     Dates: start: 20161013, end: 20161013
  69. METHAPAIN [Interacting]
     Active Substance: METHADONE HYDROCHLORIDE
     Indication: PANCREATIC CARCINOMA
     Route: 048
     Dates: start: 20161101
  70. LYRICA [Suspect]
     Active Substance: PREGABALIN
     Indication: PANCREATIC CARCINOMA
     Route: 048
     Dates: end: 20161011
  71. OXINORM [OXYCODONE HYDROCHLORIDE] [Suspect]
     Active Substance: OXYCODONE HYDROCHLORIDE
     Indication: BENIGN BONE NEOPLASM
     Dosage: 20-60 MG/DAY
     Route: 048
  72. OXINORM [OXYCODONE HYDROCHLORIDE] [Suspect]
     Active Substance: OXYCODONE HYDROCHLORIDE
     Indication: PANCREATIC CARCINOMA
     Route: 048
     Dates: start: 20160924, end: 20160925
  73. ELIQUIS [Concomitant]
     Active Substance: APIXABAN
     Dosage: 2.5MG UNKNOWN
     Route: 048
     Dates: start: 20160924, end: 20161011
  74. METHAPAIN [Interacting]
     Active Substance: METHADONE HYDROCHLORIDE
     Indication: PAIN
     Route: 048
  75. METHAPAIN [Interacting]
     Active Substance: METHADONE HYDROCHLORIDE
     Indication: BENIGN BONE NEOPLASM
     Route: 048
     Dates: start: 20160912, end: 20161011
  76. METHAPAIN [Interacting]
     Active Substance: METHADONE HYDROCHLORIDE
     Indication: PANCREATIC CARCINOMA
     Route: 048
     Dates: start: 20161101
  77. METHAPAIN [Interacting]
     Active Substance: METHADONE HYDROCHLORIDE
     Indication: BENIGN BONE NEOPLASM
     Route: 048
     Dates: start: 20161101
  78. METHAPAIN [Interacting]
     Active Substance: METHADONE HYDROCHLORIDE
     Indication: PAIN
     Route: 048
     Dates: start: 20160927, end: 20160927
  79. METHAPAIN [Interacting]
     Active Substance: METHADONE HYDROCHLORIDE
     Indication: PAIN
     Route: 048
     Dates: start: 20161008, end: 20161008
  80. METHAPAIN [Interacting]
     Active Substance: METHADONE HYDROCHLORIDE
     Indication: BENIGN BONE NEOPLASM
     Route: 048
     Dates: start: 20161010, end: 20161010
  81. METHAPAIN [Interacting]
     Active Substance: METHADONE HYDROCHLORIDE
     Indication: BENIGN BONE NEOPLASM
     Route: 048
     Dates: start: 20161013, end: 20161013
  82. METHAPAIN [Interacting]
     Active Substance: METHADONE HYDROCHLORIDE
     Indication: BENIGN BONE NEOPLASM
     Route: 048
     Dates: start: 20161101
  83. OXINORM [OXYCODONE HYDROCHLORIDE] [Suspect]
     Active Substance: OXYCODONE HYDROCHLORIDE
     Indication: PANCREATIC CARCINOMA
     Route: 048
     Dates: start: 20160927, end: 20161007
  84. OXINORM [OXYCODONE HYDROCHLORIDE] [Suspect]
     Active Substance: OXYCODONE HYDROCHLORIDE
     Indication: BENIGN BONE NEOPLASM
     Route: 048
     Dates: start: 20161008, end: 20161008
  85. METHAPAIN [Interacting]
     Active Substance: METHADONE HYDROCHLORIDE
     Indication: BENIGN BONE NEOPLASM
     Route: 048
  86. METHAPAIN [Interacting]
     Active Substance: METHADONE HYDROCHLORIDE
     Indication: PAIN
     Route: 048
     Dates: start: 20161009, end: 20161013
  87. METHAPAIN [Interacting]
     Active Substance: METHADONE HYDROCHLORIDE
     Indication: BENIGN BONE NEOPLASM
     Route: 048
     Dates: start: 20160912, end: 20160923
  88. METHAPAIN [Interacting]
     Active Substance: METHADONE HYDROCHLORIDE
     Indication: PANCREATIC CARCINOMA
     Route: 048
     Dates: start: 20160912, end: 20161011
  89. METHAPAIN [Interacting]
     Active Substance: METHADONE HYDROCHLORIDE
     Indication: PANCREATIC CARCINOMA
     Route: 048
     Dates: start: 20160926, end: 20160926
  90. METHAPAIN [Interacting]
     Active Substance: METHADONE HYDROCHLORIDE
     Indication: PANCREATIC CARCINOMA
     Route: 048
     Dates: start: 20161007, end: 20161007
  91. METHAPAIN [Interacting]
     Active Substance: METHADONE HYDROCHLORIDE
     Indication: BENIGN BONE NEOPLASM
     Route: 048
     Dates: start: 20161008, end: 20161008
  92. METHAPAIN [Interacting]
     Active Substance: METHADONE HYDROCHLORIDE
     Indication: PANCREATIC CARCINOMA
     Route: 048
     Dates: start: 20161009, end: 20161009
  93. METHAPAIN [Interacting]
     Active Substance: METHADONE HYDROCHLORIDE
     Indication: PAIN
     Route: 048
     Dates: start: 20161010, end: 20161010
  94. METHAPAIN [Interacting]
     Active Substance: METHADONE HYDROCHLORIDE
     Indication: PANCREATIC CARCINOMA
     Route: 048
     Dates: start: 20161011, end: 20161011
  95. OXINORM [OXYCODONE HYDROCHLORIDE] [Suspect]
     Active Substance: OXYCODONE HYDROCHLORIDE
     Indication: PANCREATIC CARCINOMA
     Route: 048
     Dates: end: 20160923
  96. OXINORM [OXYCODONE HYDROCHLORIDE] [Suspect]
     Active Substance: OXYCODONE HYDROCHLORIDE
     Indication: BENIGN BONE NEOPLASM
     Route: 048
     Dates: start: 20160924, end: 20160925

REACTIONS (7)
  - Transient ischaemic attack [Unknown]
  - Hypoglycaemia [Recovered/Resolved]
  - Drug interaction [Recovered/Resolved]
  - Hypercoagulation [Unknown]
  - Off label use [Unknown]
  - Hemiplegia [Unknown]
  - Depressed level of consciousness [Unknown]

NARRATIVE: CASE EVENT DATE: 20161011
